FAERS Safety Report 5541759-X (Version None)
Quarter: 2007Q4

REPORT INFORMATION
  Report Type: 
  Country: None (occurrence: None)
  Receive Date: 20071210
  Receipt Date: 20071130
  Transmission Date: 20080405
  Serious: Yes (Other)
  Sender: FDA-Public Use
  Company Number: A0696767A

PATIENT
  Age: 55 Year
  Sex: Female

DRUGS (1)
  1. PAXIL [Suspect]
     Indication: ANXIETY DISORDER
     Route: 048

REACTIONS (3)
  - ANGER [None]
  - HYPERHIDROSIS [None]
  - VIOLENCE-RELATED SYMPTOM [None]
